FAERS Safety Report 14561162 (Version 1)
Quarter: 2018Q1

REPORT INFORMATION
  Report Type: Spontaneous
  Country: IT (occurrence: IT)
  Receive Date: 20180222
  Receipt Date: 20180222
  Transmission Date: 20180509
  Serious: Yes (Hospitalization)
  Sender: FDA-Public Use
  Company Number: IT-ASTRAZENECA-2018SE19989

PATIENT
  Age: 42 Year
  Sex: Male

DRUGS (4)
  1. VALDORM (FLURAZEPAM HYDROCHLORIDE) [Suspect]
     Active Substance: FLURAZEPAM HYDROCHLORIDE
     Indication: INTENTIONAL SELF-INJURY
     Dosage: 60.0MG UNKNOWN
     Route: 048
  2. RIVOTRIL [Suspect]
     Active Substance: CLONAZEPAM
     Indication: INTENTIONAL SELF-INJURY
     Dosage: 2.0MG UNKNOWN
     Route: 048
  3. QUETIAPINE. [Suspect]
     Active Substance: QUETIAPINE
     Indication: INTENTIONAL SELF-INJURY
     Dosage: 300.0MG UNKNOWN
     Route: 048
  4. DEPAKIN [Suspect]
     Active Substance: VALPROATE SODIUM
     Indication: INTENTIONAL SELF-INJURY
     Dosage: 500.0MG UNKNOWN
     Route: 048

REACTIONS (5)
  - Nausea [Unknown]
  - Intentional self-injury [Unknown]
  - Retching [Unknown]
  - Vomiting [Unknown]
  - Drug abuse [Unknown]

NARRATIVE: CASE EVENT DATE: 20170420
